FAERS Safety Report 22650052 (Version 1)
Quarter: 2023Q2

REPORT INFORMATION
  Report Type: Report from Study
  Country: US (occurrence: US)
  Receive Date: 20230628
  Receipt Date: 20230628
  Transmission Date: 20230722
  Serious: Yes (Death)
  Sender: FDA-Public Use
  Company Number: US-LEO Pharma-360258

PATIENT
  Age: 62 Year
  Sex: Male
  Weight: 74 kg

DRUGS (7)
  1. ELIDEL [Concomitant]
     Active Substance: PIMECROLIMUS
     Indication: Dermatitis atopic
     Dosage: FORMULATION:OINTMENT/CREAM/LOTION
     Route: 003
     Dates: start: 20210504
  2. ADBRY [Suspect]
     Active Substance: TRALOKINUMAB-LDRM
     Indication: Dermatitis atopic
     Route: 058
     Dates: start: 20230206
  3. MONTELUKAST [Concomitant]
     Active Substance: MONTELUKAST SODIUM
     Indication: Dermatitis atopic
     Dosage: TABLET
     Route: 048
     Dates: start: 20220205
  4. TRIAMCINOLONE [Concomitant]
     Active Substance: TRIAMCINOLONE
     Indication: Dermatitis atopic
     Dosage: 3 TIMES A WEEK, FORMULATION:OINTMENT/CREAM/LOTION
     Route: 003
     Dates: start: 20230206
  5. HYDROXYZINE [Concomitant]
     Active Substance: HYDROXYZINE HYDROCHLORIDE
     Indication: Dermatitis atopic
     Dosage: TABLET, DISCONTINUED, DUE TO LOSS OF EFFECT
     Route: 048
     Dates: start: 20230106, end: 20230206
  6. MUPIROCIN [Concomitant]
     Active Substance: MUPIROCIN
     Indication: Dermatitis atopic
     Dosage: FORMULATION:OINTMENT/CREAM/LOTION
     Route: 003
     Dates: start: 20220907
  7. TACROLIMUS [Concomitant]
     Active Substance: TACROLIMUS
     Indication: Dermatitis atopic
     Dosage: FORMULATION:OINTMENT/CREAM/LOTION
     Dates: start: 20230327

REACTIONS (1)
  - Death [Fatal]

NARRATIVE: CASE EVENT DATE: 20230503
